FAERS Safety Report 13414766 (Version 1)
Quarter: 2017Q2

REPORT INFORMATION
  Report Type: Spontaneous
  Country: US (occurrence: US)
  Receive Date: 20170407
  Receipt Date: 20170407
  Transmission Date: 20170830
  Serious: No
  Sender: FDA-Public Use
  Company Number: US-BAYER-2017-067120

PATIENT
  Age: 58 Year
  Sex: Female

DRUGS (2)
  1. ALEVE [Suspect]
     Active Substance: NAPROXEN SODIUM
     Indication: PAIN
     Dosage: 4 DF, UNK
  2. ALEVE [Suspect]
     Active Substance: NAPROXEN SODIUM
     Indication: PAIN
     Dosage: 1 DF, UNK EVERY 6 HOURS AS NEEDED
     Route: 048

REACTIONS (2)
  - Incorrect dose administered [None]
  - Product use issue [Recovered/Resolved]

NARRATIVE: CASE EVENT DATE: 20170405
